FAERS Safety Report 11340726 (Version 1)
Quarter: 2015Q3

REPORT INFORMATION
  Report Type: Spontaneous
  Country: None (occurrence: UG)
  Receive Date: 20150805
  Receipt Date: 20150805
  Transmission Date: 20151125
  Serious: Yes (Other)
  Sender: FDA-Public Use
  Company Number: UG-FRESENIUS KABI-FK201503661

PATIENT
  Age: 49 Year
  Sex: Male

DRUGS (3)
  1. RALTEGRAVIR. [Suspect]
     Active Substance: RALTEGRAVIR
     Indication: HERPES SIMPLEX
     Route: 065
  2. DARUNAVIR [Suspect]
     Active Substance: DARUNAVIR
     Indication: HERPES SIMPLEX
     Route: 065
  3. ACICLOVIR (MANUFACTURER UNKNOWN) (ACICLOVIR) (ACICLOVIR) [Suspect]
     Active Substance: ACYCLOVIR
     Indication: HERPES SIMPLEX
     Route: 065

REACTIONS (3)
  - Nephropathy [Unknown]
  - Kaposi^s sarcoma [Unknown]
  - Drug resistance [Recovered/Resolved]
